FAERS Safety Report 12337018 (Version 1)
Quarter: 2016Q2

REPORT INFORMATION
  Report Type: Spontaneous
  Country: US (occurrence: None)
  Receive Date: 20160504
  Receipt Date: 20160504
  Transmission Date: 20160815
  Serious: No
  Sender: FDA-Public Use
  Company Number: None

PATIENT
  Age: 46 Year
  Sex: Female
  Weight: 63.5 kg

DRUGS (1)
  1. ROBAXIN [Suspect]
     Active Substance: METHOCARBAMOL
     Indication: ARTHROPATHY
     Route: 048

REACTIONS (4)
  - Poisoning [None]
  - Skin burning sensation [None]
  - Self-medication [None]
  - Burning sensation [None]

NARRATIVE: CASE EVENT DATE: 20160404
